FAERS Safety Report 8319393-8 (Version None)
Quarter: 2012Q2

REPORT INFORMATION
  Report Type: 
  Country: None (occurrence: None)
  Receive Date: 20120427
  Receipt Date: 20120423
  Transmission Date: 20120825
  Serious: Yes (Death)
  Sender: FDA-Public Use
  Company Number: PHHY2012US035741

PATIENT
  Age: 86 Year
  Sex: Female

DRUGS (5)
  1. AMLODIPINE [Suspect]
  2. VALSARTAN AND HYDROCHLOROTHIAZIDE [Suspect]
  3. METFORMIN HCL [Suspect]
  4. ATENOLOL [Suspect]
  5. ACETAMINOPHEN [Suspect]

REACTIONS (1)
  - COMPLETED SUICIDE [None]
